FAERS Safety Report 7158185-2 (Version None)
Quarter: 2010Q4

REPORT INFORMATION
  Report Type: 
  Country: None (occurrence: None)
  Receive Date: 20101214
  Receipt Date: 20100526
  Transmission Date: 20110411
  Serious: No
  Sender: FDA-Public Use
  Company Number: US-ASTRAZENECA-2010SE11982

PATIENT
  Sex: Male

DRUGS (4)
  1. CRESTOR [Suspect]
     Route: 048
  2. POTASIUM [Suspect]
  3. TORSEMIDE [Suspect]
  4. TRILIPIX [Suspect]

REACTIONS (1)
  - MUSCLE SPASMS [None]
